FAERS Safety Report 5241598-3 (Version None)
Quarter: 2007Q1

REPORT INFORMATION
  Report Type: 
  Country: None (occurrence: None)
  Receive Date: 20061208
  Receipt Date: 20050812
  Transmission Date: 20070707
  Serious: Yes (Other)
  Sender: FDA-Public Use
  Company Number: 2005UW12075

PATIENT
  Age: 57 Year
  Sex: Female

DRUGS (8)
  1. CRESTOR [Suspect]
     Indication: BLOOD CHOLESTEROL INCREASED
  2. ZEBUTAL [Concomitant]
  3. VERSED [Concomitant]
  4. PREMARIN [Concomitant]
  5. LEXAPRO [Concomitant]
  6. IBUPROFEN [Concomitant]
  7. SOMA [Concomitant]
  8. XANAX [Concomitant]

REACTIONS (2)
  - GENERALISED OEDEMA [None]
  - MIGRAINE [None]
